FAERS Safety Report 16702805 (Version 2)
Quarter: 2025Q3

REPORT INFORMATION
  Report Type: Spontaneous
  Country: US (occurrence: US)
  Receive Date: 20190814
  Receipt Date: 20250709
  Transmission Date: 20251020
  Serious: Yes (Other)
  Sender: AUROBINDO
  Company Number: US-MYLANLABS-2019M1076396

PATIENT
  Age: 57 Year
  Sex: Female

DRUGS (6)
  1. FLUOROURACIL [Suspect]
     Active Substance: FLUOROURACIL
     Indication: Malignant neoplasm of ampulla of Vater
     Route: 065
  2. FLUOROURACIL [Suspect]
     Active Substance: FLUOROURACIL
     Route: 065
  3. OXALIPLATIN [Suspect]
     Active Substance: OXALIPLATIN
     Indication: Malignant neoplasm of ampulla of Vater
     Route: 065
  4. IRINOTECAN [Suspect]
     Active Substance: IRINOTECAN
     Indication: Malignant neoplasm of ampulla of Vater
     Route: 065
  5. LEUCOVORIN [Suspect]
     Active Substance: LEUCOVORIN\LEUCOVORIN CALCIUM
     Indication: Product used for unknown indication
     Route: 065
  6. LEUCOVORIN [Suspect]
     Active Substance: LEUCOVORIN\LEUCOVORIN CALCIUM
     Route: 065

REACTIONS (1)
  - Drug ineffective [Unknown]
